FAERS Safety Report 20132443 (Version 1)
Quarter: 2021Q4

REPORT INFORMATION
  Report Type: Spontaneous
  Country: US (occurrence: US)
  Receive Date: 20211130
  Receipt Date: 20211130
  Transmission Date: 20220303
  Serious: Yes (Hospitalization)
  Sender: FDA-Public Use
  Company Number: US-SA-SAC20211129001493

PATIENT
  Sex: Male

DRUGS (7)
  1. DUPIXENT [Suspect]
     Active Substance: DUPILUMAB
     Indication: Rhinitis allergic
     Dosage: 300 MG, QOW
     Route: 058
     Dates: start: 2020
  2. ALBUTEROL SULFATE [Concomitant]
     Active Substance: ALBUTEROL SULFATE
     Dosage: 2 MG
  3. ELIQUIS [Concomitant]
     Active Substance: APIXABAN
     Dosage: 5 MG
  4. FUROSEMIDE [Concomitant]
     Active Substance: FUROSEMIDE
     Dosage: 20 MG
  5. PRIMIDONE [Concomitant]
     Active Substance: PRIMIDONE
     Dosage: 50 MG
  6. ROPINIROLE [Concomitant]
     Active Substance: ROPINIROLE
     Dosage: 1 MG
  7. BUDESONIDE\FORMOTEROL\GLYCOPYRRONIUM [Concomitant]
     Active Substance: BUDESONIDE\FORMOTEROL\GLYCOPYRRONIUM
     Dosage: UNK

REACTIONS (4)
  - Asthma [Not Recovered/Not Resolved]
  - Dyspnoea [Recovered/Resolved]
  - Eye pain [Recovered/Resolved]
  - Product use in unapproved indication [Unknown]
